FAERS Safety Report 5871875-4 (Version None)
Quarter: 2008Q3

REPORT INFORMATION
  Report Type: 
  Country: None (occurrence: None)
  Receive Date: 20080905
  Receipt Date: 20080630
  Transmission Date: 20090109
  Serious: No
  Sender: FDA-Public Use
  Company Number: US-BAYER-200822263NA

PATIENT
  Age: 19 Year
  Sex: Female
  Weight: 66 kg

DRUGS (2)
  1. YAZ [Suspect]
     Indication: CONTRACEPTION
     Route: 048
     Dates: start: 20060101
  2. CEPHALEXIN [Concomitant]
     Indication: LOWER EXTREMITY MASS
     Dates: start: 20080501

REACTIONS (1)
  - LOWER EXTREMITY MASS [None]
